FAERS Safety Report 8187696-6 (Version None)
Quarter: 2012Q1

REPORT INFORMATION
  Report Type: 
  Country: None (occurrence: None)
  Receive Date: 20120306
  Receipt Date: 20111110
  Transmission Date: 20120608
  Serious: No
  Sender: FDA-Public Use
  Company Number: US-GLAXOSMITHKLINE-A0952633A

PATIENT
  Age: 26 Year
  Sex: Female

DRUGS (3)
  1. KLONOPIN [Concomitant]
  2. TYLENOL W/ CODEINE NO. 3 [Concomitant]
  3. LAMICTAL [Suspect]
     Indication: BORDERLINE PERSONALITY DISORDER
     Dosage: 25MG PER DAY
     Route: 048
     Dates: start: 20111108

REACTIONS (1)
  - RASH PRURITIC [None]
